FAERS Safety Report 5400002-2 (Version None)
Quarter: 2007Q3

REPORT INFORMATION
  Report Type: 
  Country: None (occurrence: None)
  Receive Date: 20070726
  Receipt Date: 20070726
  Transmission Date: 20080115
  Serious: No
  Sender: FDA-Public Use
  Company Number: None

PATIENT
  Sex: Male
  Weight: 78.33 kg

DRUGS (1)
  1. PIPPERACILLIN/TAZOBAC 67.5MG/ML 50 ML [3.375GM] ZOSYN [Suspect]
     Indication: BACTERAEMIA
     Dosage: 3.375GM Q8H IV DRIP
     Route: 041
     Dates: start: 20070710, end: 20070712

REACTIONS (7)
  - CHEST PAIN [None]
  - DIARRHOEA [None]
  - DYSPNOEA [None]
  - FEELING ABNORMAL [None]
  - NAUSEA [None]
  - PYREXIA [None]
  - TACHYCARDIA [None]
